FAERS Safety Report 8577716-9 (Version None)
Quarter: 2012Q3

REPORT INFORMATION
  Report Type: 
  Country: None (occurrence: None)
  Receive Date: 20120808
  Receipt Date: 20120803
  Transmission Date: 20120928
  Serious: Yes (Other)
  Sender: FDA-Public Use
  Company Number: FI-AMGEN-FINSP2012048488

PATIENT
  Age: 67 Year
  Sex: Female

DRUGS (2)
  1. XGEVA [Suspect]
     Indication: BREAST CANCER
     Dosage: UNK
     Dates: start: 20120701
  2. FASLODEX                           /01503001/ [Concomitant]
     Dosage: UNK
     Dates: start: 20120701

REACTIONS (1)
  - THROMBOCYTOPENIA [None]
